FAERS Safety Report 6747992-3 (Version None)
Quarter: 2010Q2

REPORT INFORMATION
  Report Type: 
  Country: None (occurrence: None)
  Receive Date: 20100528
  Receipt Date: 20100521
  Transmission Date: 20101027
  Serious: Yes (Hospitalization, Other)
  Sender: FDA-Public Use
  Company Number: US-AMGEN-QUU410159

PATIENT
  Sex: Female
  Weight: 58.1 kg

DRUGS (11)
  1. ARANESP [Suspect]
     Indication: RENAL FAILURE CHRONIC
     Route: 058
     Dates: start: 20060421, end: 20070810
  2. IMURAN [Concomitant]
     Dates: start: 20050825
  3. CYCLOSPORINE [Concomitant]
     Dates: start: 20080909
  4. PREDNISONE TAB [Concomitant]
     Dates: start: 20051018
  5. CALCITRIOL [Concomitant]
     Dates: start: 20100225
  6. CALCIUM WITH VITAMIN D [Concomitant]
     Dates: start: 20080715
  7. ASPIRIN [Concomitant]
     Dates: start: 20060101
  8. LANSOPRAZOLE [Concomitant]
     Dates: start: 20090424
  9. METOPROLOL [Concomitant]
     Dates: start: 20100225
  10. PLAQUENIL [Concomitant]
     Dates: start: 20100325
  11. ZANTAC [Concomitant]
     Dates: start: 20090106

REACTIONS (10)
  - ANAEMIA [None]
  - ARTERIOVENOUS MALFORMATION [None]
  - ASTHENIA [None]
  - BONE MARROW FAILURE [None]
  - DRUG INEFFECTIVE [None]
  - GASTRIC HAEMORRHAGE [None]
  - GASTRITIS [None]
  - HYPERPHOSPHATAEMIA [None]
  - HYPOTENSION [None]
  - OSTEOPENIA [None]
